FAERS Safety Report 15474429 (Version 1)
Quarter: 2018Q4

REPORT INFORMATION
  Report Type: Report from Study
  Country: ES (occurrence: ES)
  Receive Date: 20181008
  Receipt Date: 20181008
  Transmission Date: 20190205
  Serious: Yes (Hospitalization)
  Sender: FDA-Public Use
  Company Number: ES-PFIZER INC-2018397986

PATIENT
  Age: 84 Year
  Sex: Male

DRUGS (8)
  1. ENOXAPARIN [Concomitant]
     Active Substance: ENOXAPARIN
     Dosage: 50 MG, DAILY
     Route: 058
     Dates: start: 20171016
  2. EPLERENONE. [Suspect]
     Active Substance: EPLERENONE
     Dosage: 50 MG, 1X/DAY (DINNER)
     Route: 048
     Dates: start: 20171018, end: 20171026
  3. ADIRO [Concomitant]
     Active Substance: ASPIRIN
     Dosage: 0-1-0
     Route: 048
     Dates: start: 20171016
  4. FUROSEMIDE. [Interacting]
     Active Substance: FUROSEMIDE
     Dosage: 40 MG, 3X/DAY (EVERY 8 HOURS)
     Route: 042
     Dates: start: 20171016, end: 20171026
  5. AMIODARONE [Concomitant]
     Active Substance: AMIODARONE
     Dosage: 600 MG, DAILY FOR 3 DAYS
     Route: 042
     Dates: start: 20171019
  6. AMIODARONE [Concomitant]
     Active Substance: AMIODARONE
     Dosage: 200 MG, DAILY
     Route: 042
  7. PANTOPRAZOLE [Concomitant]
     Active Substance: PANTOPRAZOLE
     Dosage: 40 MG, DAILY
     Route: 042
     Dates: start: 20171016
  8. PARACETAMOL [Concomitant]
     Active Substance: ACETAMINOPHEN
     Dosage: 1 G, 3X/DAY (EVERY 8 HOURS)
     Route: 042
     Dates: start: 20171016

REACTIONS (2)
  - Hyponatraemia [Recovered/Resolved]
  - Drug interaction [Recovered/Resolved]

NARRATIVE: CASE EVENT DATE: 20171026
